FAERS Safety Report 17026411 (Version 2)
Quarter: 2019Q4

REPORT INFORMATION
  Report Type: Spontaneous
  Country: US (occurrence: US)
  Receive Date: 20191113
  Receipt Date: 20191120
  Transmission Date: 20200122
  Serious: Yes (Hospitalization, Other)
  Sender: FDA-Public Use
  Company Number: US-PFIZER INC-2019484260

PATIENT
  Age: 82 Year
  Sex: Female

DRUGS (3)
  1. HEPARIN SODIUM. [Suspect]
     Active Substance: HEPARIN SODIUM
     Indication: ARTERIOVENOUS FISTULA THROMBOSIS
     Dosage: UNK (DRIP)
  2. PANTOPRAZOLE [Concomitant]
     Active Substance: PANTOPRAZOLE
     Dosage: UNK (DRIP)
  3. WARFARIN [Suspect]
     Active Substance: WARFARIN
     Indication: ARTERIOVENOUS FISTULA THROMBOSIS
     Dosage: UNK

REACTIONS (1)
  - Haematocrit decreased [Unknown]
